FAERS Safety Report 18442397 (Version 1)
Quarter: 2020Q4

REPORT INFORMATION
  Report Type: Spontaneous
  Country: AU (occurrence: AU)
  Receive Date: 20201029
  Receipt Date: 20201029
  Transmission Date: 20210114
  Serious: Yes (Disabling)
  Sender: FDA-Public Use
  Company Number: AU-ASTRAZENECA-2020SF29000

PATIENT
  Sex: Female
  Weight: 52 kg

DRUGS (6)
  1. PANADOL [Concomitant]
     Active Substance: ACETAMINOPHEN
     Dates: end: 202010
  2. NEUROFEN [Concomitant]
     Active Substance: IBUPROFEN
     Dates: end: 202010
  3. BREO ELLIPTA [Concomitant]
     Active Substance: FLUTICASONE FUROATE\VILANTEROL TRIFENATATE
     Indication: ASTHMA
     Dosage: 200/25MCG TWO TIMES A DAY
     Dates: start: 2018
  4. FASENRA [Suspect]
     Active Substance: BENRALIZUMAB
     Indication: ASTHMA
     Dosage: 30.0MG UNKNOWN
     Route: 058
     Dates: start: 20191101, end: 20200901
  5. VENTOLIN [Concomitant]
     Active Substance: ALBUTEROL SULFATE
     Indication: ASTHMA
     Dosage: 100MCG MDI/SPACER
     Dates: start: 1990
  6. SPIRIVA RESPIMAT [Concomitant]
     Active Substance: TIOTROPIUM BROMIDE
     Indication: ASTHMA
     Dosage: 5 MG
     Route: 055
     Dates: start: 2018

REACTIONS (1)
  - Arthralgia [Recovering/Resolving]
